FAERS Safety Report 5151515-2 (Version None)
Quarter: 2006Q4

REPORT INFORMATION
  Report Type: 
  Country: None (occurrence: None)
  Receive Date: 20061114
  Receipt Date: 20061114
  Transmission Date: 20070319
  Serious: Yes (Other)
  Sender: FDA-Public Use
  Company Number: None

PATIENT
  Age: 77 Year
  Sex: Female
  Weight: 83.9154 kg

DRUGS (5)
  1. METFORMIN ER 750MG [Suspect]
     Indication: DIABETES MELLITUS
     Dosage: 1 TABLET PO DAILY
     Route: 048
  2. VESICARE [Concomitant]
  3. ALTACE [Concomitant]
  4. ZOCOR [Concomitant]
  5. TYLENOL [Concomitant]

REACTIONS (2)
  - DIABETES MELLITUS INADEQUATE CONTROL [None]
  - PHARMACEUTICAL PRODUCT COMPLAINT [None]
